FAERS Safety Report 6991686-6 (Version None)
Quarter: 2010Q3

REPORT INFORMATION
  Report Type: 
  Country: None (occurrence: None)
  Receive Date: 20100917
  Receipt Date: 20100907
  Transmission Date: 20110219
  Serious: Yes (Other)
  Sender: FDA-Public Use
  Company Number: PHHY2010CA08501

PATIENT
  Sex: Female

DRUGS (6)
  1. ACLASTA/ZOLEDRONATE T29581+A+ [Suspect]
     Indication: OSTEOPOROSIS
     Dosage: 5 MG
     Route: 042
     Dates: start: 20090420
  2. FOSAVANCE [Concomitant]
     Dosage: UNK
     Dates: start: 20100210
  3. VITAMIN D [Concomitant]
     Dosage: 10000 UNK, UNK
  4. CALCIUM [Concomitant]
     Dosage: 500 MG, BID
  5. CRESTOR [Concomitant]
     Dosage: 40 MG
  6. EZETROL [Concomitant]
     Dosage: 10 MG

REACTIONS (5)
  - FALL [None]
  - HYPOKINESIA [None]
  - MYALGIA [None]
  - RADIUS FRACTURE [None]
  - WRIST FRACTURE [None]
